FAERS Safety Report 22605403 (Version 2)
Quarter: 2023Q2

REPORT INFORMATION
  Report Type: Report from Study
  Country: US (occurrence: US)
  Receive Date: 20230615
  Receipt Date: 20230623
  Transmission Date: 20230722
  Serious: No
  Sender: FDA-Public Use
  Company Number: US-002147023-NVSC2023US133086

PATIENT
  Sex: Female

DRUGS (13)
  1. COSENTYX [Suspect]
     Active Substance: SECUKINUMAB
     Indication: Psoriasis
     Dosage: 300 MG
     Route: 058
  2. MOXIFLOXACIN [Suspect]
     Active Substance: MOXIFLOXACIN
     Indication: Psoriasis
     Dosage: UNK (MOXIFLOXACIN HCI)
     Route: 065
  3. MOMETASONE [Suspect]
     Active Substance: MOMETASONE
     Indication: Psoriasis
     Dosage: UNK (MOMETASONE FUROATE)
     Route: 065
  4. METRONIDAZOLE [Suspect]
     Active Substance: METRONIDAZOLE
     Indication: Psoriasis
     Dosage: UNK
     Route: 065
  5. CLINDAMYCIN [Suspect]
     Active Substance: CLINDAMYCIN
     Indication: Psoriasis
     Dosage: UNK
     Route: 048
  6. RIFAMPIN [Suspect]
     Active Substance: RIFAMPIN
     Indication: Psoriasis
     Dosage: UNK
     Route: 065
  7. ASPIRIN [Suspect]
     Active Substance: ASPIRIN
     Indication: Psoriasis
     Dosage: UNK (DELAYED RELEASE)
     Route: 065
  8. DOCUSATE [Suspect]
     Active Substance: DOCUSATE
     Indication: Psoriasis
     Dosage: UNK (DOCUSATE SODIUM)
     Route: 065
  9. DROSPIRENONE [Suspect]
     Active Substance: DROSPIRENONE
     Indication: Psoriasis
     Dosage: UNK (DROSPIRENONE-ETHINYL-ESTRADIOLLEVOMEFOLATE)
     Route: 065
  10. SPIRONOLACTONE [Suspect]
     Active Substance: SPIRONOLACTONE
     Indication: Psoriasis
     Dosage: UNK
     Route: 065
  11. METRONIDAZOLE [Suspect]
     Active Substance: METRONIDAZOLE
     Indication: Psoriasis
     Dosage: 375 MG
     Route: 048
  12. METRONIDAZOLE [Suspect]
     Active Substance: METRONIDAZOLE
     Indication: Psoriasis
     Dosage: 500 MG
     Route: 048
  13. HUMIRA [Suspect]
     Active Substance: ADALIMUMAB
     Indication: Psoriasis
     Dosage: UNK
     Route: 065

REACTIONS (13)
  - Hidradenitis [Unknown]
  - Ulcer [Unknown]
  - Pain [Unknown]
  - Feeling hot [Unknown]
  - Scar [Unknown]
  - Fistula discharge [Unknown]
  - Nodule [Unknown]
  - Skin discolouration [Unknown]
  - Skin erosion [Unknown]
  - Psoriasis [Unknown]
  - Treatment failure [Unknown]
  - Drug ineffective [Unknown]
  - Product use in unapproved indication [Unknown]
